FAERS Safety Report 7455640-2 (Version None)
Quarter: 2011Q2

REPORT INFORMATION
  Report Type: 
  Country: None (occurrence: None)
  Receive Date: 20110503
  Receipt Date: 20110426
  Transmission Date: 20111010
  Serious: Yes (Hospitalization, Other)
  Sender: FDA-Public Use
  Company Number: US-ROCHE-751894

PATIENT
  Sex: Male
  Weight: 79.4 kg

DRUGS (3)
  1. ACCUTANE [Suspect]
     Route: 065
     Dates: start: 19970101, end: 19990101
  2. ACCUTANE [Suspect]
     Route: 065
     Dates: start: 19920101
  3. ACCUTANE [Suspect]
     Route: 065
     Dates: end: 19950101

REACTIONS (8)
  - INFLAMMATORY BOWEL DISEASE [None]
  - PERIRECTAL ABSCESS [None]
  - ANAL FISTULA [None]
  - DUODENAL OBSTRUCTION [None]
  - COLONIC FISTULA [None]
  - CROHN'S DISEASE [None]
  - INTESTINAL STENOSIS [None]
  - ILEAL PERFORATION [None]
